FAERS Safety Report 6869220-0 (Version None)
Quarter: 2010Q3

REPORT INFORMATION
  Report Type: 
  Country: None (occurrence: None)
  Receive Date: 20100722
  Receipt Date: 20080813
  Transmission Date: 20110219
  Serious: No
  Sender: FDA-Public Use
  Company Number: US-PFIZER INC-2008055456

PATIENT
  Age: 45 Year
  Sex: Male

DRUGS (3)
  1. CHANTIX [Suspect]
  2. OXYMORPHONE [Suspect]
  3. PERCOCET [Suspect]

REACTIONS (3)
  - DEPRESSION [None]
  - NAUSEA [None]
  - PRURITUS [None]
